FAERS Safety Report 8487955-3 (Version None)
Quarter: 2012Q3

REPORT INFORMATION
  Report Type: 
  Country: None (occurrence: None)
  Receive Date: 20120705
  Receipt Date: 20120626
  Transmission Date: 20120928
  Serious: Yes (Hospitalization)
  Sender: FDA-Public Use
  Company Number: US-BAYER-2012-055920

PATIENT
  Age: 32 Year
  Sex: Female
  Weight: 54.422 kg

DRUGS (4)
  1. YAZ [Suspect]
     Indication: PREMENSTRUAL SYNDROME
     Dosage: 1 DF, QD
     Route: 048
     Dates: start: 20100901, end: 20110414
  2. ALBUTEROL [Concomitant]
     Indication: DYSPNOEA
     Dosage: 90 MCG, 2 PUFFS AS NEEDED
     Dates: start: 20110331, end: 20110414
  3. ALLERTEC [Concomitant]
     Indication: SEASONAL ALLERGY
     Dosage: 10 MG,1 DAILY
     Dates: start: 20110101
  4. MULTI-VITAMIN [Concomitant]
     Dosage: 1 PILL DAILY

REACTIONS (5)
  - PULMONARY EMBOLISM [None]
  - DEEP VEIN THROMBOSIS [None]
  - INJURY [None]
  - PAIN [None]
  - DYSPNOEA [None]
